FAERS Safety Report 9734119 (Version 2)
Quarter: 2013Q4

REPORT INFORMATION
  Report Type: Report from Study
  Country: US (occurrence: US)
  Receive Date: 20131205
  Receipt Date: 20131226
  Transmission Date: 20140711
  Serious: Yes (Hospitalization)
  Sender: FDA-Public Use
  Company Number: US-ACTELION-A-NJ2013-91809

PATIENT
  Age: 48 Year
  Sex: Male

DRUGS (1)
  1. VELETRI [Suspect]
     Indication: COR PULMONALE CHRONIC
     Dosage: 28 NG/KG, PER MIN
     Route: 042
     Dates: start: 20130305, end: 20131213

REACTIONS (3)
  - Thrombosis in device [Unknown]
  - Dyspnoea [Unknown]
  - Therapeutic product ineffective [Unknown]
